FAERS Safety Report 21654008 (Version 2)
Quarter: 2023Q2

REPORT INFORMATION
  Report Type: Spontaneous
  Country: PT (occurrence: PT)
  Receive Date: 20221129
  Receipt Date: 20230522
  Transmission Date: 20230721
  Serious: Yes (Hospitalization, Other)
  Sender: FDA-Public Use
  Company Number: PT-GT-20221439

PATIENT
  Age: 65 Year
  Sex: Male

DRUGS (1)
  1. ALENDRONIC ACID [Suspect]
     Active Substance: ALENDRONIC ACID
     Indication: Product used for unknown indication
     Dosage: 70 MILLIGRAM, EVERY WEEK
     Route: 065

REACTIONS (4)
  - Pain [Recovered/Resolved]
  - Femur fracture [Recovered/Resolved]
  - Atypical femur fracture [Recovered/Resolved]
  - Off label use [Recovered/Resolved]
